FAERS Safety Report 8318230 (Version 4)
Quarter: 2019Q4

REPORT INFORMATION
  Report Type: Spontaneous
  Country: US (occurrence: US)
  Receive Date: 20120103
  Receipt Date: 20191024
  Transmission Date: 20200122
  Serious: No
  Sender: FDA-Public Use
  Company Number: US-PFIZER INC-2011231195

PATIENT
  Age: 62 Year
  Sex: Male
  Weight: 98.88 kg

DRUGS (3)
  1. NIFEDIPINE. [Suspect]
     Active Substance: NIFEDIPINE
     Indication: BLOOD PRESSURE ABNORMAL
     Dosage: 30 MG, 1X/DAY
  2. TENORMIN [Concomitant]
     Active Substance: ATENOLOL
     Indication: BLOOD PRESSURE ABNORMAL
     Dosage: CUT THEM HALF, SO TECHNICALLY 25 MG
  3. CLONIDINE. [Concomitant]
     Active Substance: CLONIDINE
     Indication: ANXIETY
     Dosage: 1 MG, UNK

REACTIONS (5)
  - Chest discomfort [Unknown]
  - Palpitations [Unknown]
  - Anxiety [Unknown]
  - Drug intolerance [Unknown]
  - Drug ineffective [Unknown]
